FAERS Safety Report 4827823-9 (Version None)
Quarter: 2005Q4

REPORT INFORMATION
  Report Type: 
  Country: None (occurrence: None)
  Receive Date: 20051114
  Receipt Date: 20051114
  Transmission Date: 20060501
  Serious: Yes (Hospitalization)
  Sender: FDA-Public Use
  Company Number: None

PATIENT
  Age: 80 Year
  Sex: Female
  Weight: 40.8237 kg

DRUGS (1)
  1. OXYGEN [Suspect]
     Indication: LUNG DISORDER
     Dosage: 2 LPM CONSERVING
     Dates: start: 20050806, end: 20050901

REACTIONS (4)
  - BURNING SENSATION [None]
  - LUNG DISORDER [None]
  - MEDICAL DEVICE COMPLICATION [None]
  - THROAT IRRITATION [None]
